FAERS Safety Report 8765705 (Version 1)
Quarter: 2012Q4

REPORT INFORMATION
  Report Type: 
  Country: CA (occurrence: CA)
  Receive Date: 20120903
  Receipt Date: 20120903
  Transmission Date: 20130627
  Serious: Yes (Other)
  Sender: FDA-Public Use
  Company Number: PHHY2012CA075244

PATIENT
  Sex: Female

DRUGS (1)
  1. GILENYA [Suspect]
     Dosage: UNK UKN, UNK
     Route: 048

REACTIONS (5)
  - Ocular icterus [Unknown]
  - Abdominal tenderness [Unknown]
  - Abdominal pain [Unknown]
  - Dizziness [None]
  - Blood pressure increased [None]
